FAERS Safety Report 8142555-X (Version None)
Quarter: 2012Q1

REPORT INFORMATION
  Report Type: 
  Country: None (occurrence: None)
  Receive Date: 20120216
  Receipt Date: 20120206
  Transmission Date: 20120608
  Serious: Yes (Hospitalization)
  Sender: FDA-Public Use
  Company Number: US-UCBSA-050718

PATIENT
  Age: 32 Year
  Sex: Female
  Weight: 63.59 kg

DRUGS (15)
  1. PHENERGAN [Concomitant]
  2. MAGNESIUM HYDROXIDE TAB [Concomitant]
     Dosage: AS NECESSARY
     Dates: start: 20110702
  3. FLEXERIL [Concomitant]
     Dates: start: 20110702
  4. PENTASA [Concomitant]
     Indication: CROHN'S DISEASE
     Dates: start: 20100601
  5. PREDNISONE TAB [Concomitant]
     Indication: CROHN'S DISEASE
     Dates: start: 19981101
  6. LOPERAMIDE HCL [Concomitant]
  7. CIMZIA [Suspect]
     Indication: CROHN'S DISEASE
     Route: 058
     Dates: start: 20100727
  8. AVELOX [Concomitant]
     Dates: start: 20110702
  9. CODEINE [Concomitant]
  10. DILAUDID [Concomitant]
     Dosage: 4 MG
  11. POTASSIUM CHLORIDE [Concomitant]
  12. PERCOCET [Concomitant]
     Indication: PAIN
     Dosage: 5/325 1-2, AS NECESSARY
     Dates: start: 20110702
  13. ACETAMINOPHEN [Concomitant]
  14. REGLAN [Concomitant]
  15. VITAMIN B-12 [Concomitant]

REACTIONS (1)
  - URINARY TRACT INFECTION [None]
